FAERS Safety Report 4543994-6 (Version None)
Quarter: 2005Q1

REPORT INFORMATION
  Report Type: 
  Country: None (occurrence: None)
  Receive Date: 20050104
  Receipt Date: 20041122
  Transmission Date: 20050727
  Serious: Yes (Other)
  Sender: FDA-Public Use
  Company Number: DE-ROCHE-386971

PATIENT
  Age: 38 Year
  Sex: Female
  Weight: 65 kg

DRUGS (2)
  1. PEG-INTERFERON ALFA 2A (RO 25-8310) [Suspect]
     Dosage: DOSAGE REGIMEN: PER WEEK
     Route: 058
     Dates: start: 20040722
  2. RIBAVIRIN [Suspect]
     Route: 048
     Dates: start: 20041021

REACTIONS (2)
  - MENOMETRORRHAGIA [None]
  - MENORRHAGIA [None]
